FAERS Safety Report 5055953-8 (Version None)
Quarter: 2006Q3

REPORT INFORMATION
  Report Type: 
  Country: None (occurrence: None)
  Receive Date: 20060720
  Receipt Date: 20060711
  Transmission Date: 20061208
  Serious: Yes (Hospitalization, Other)
  Sender: FDA-Public Use
  Company Number: US-BRISTOL-MYERS SQUIBB COMPANY-13438742

PATIENT
  Age: 50 Year
  Sex: Female
  Weight: 75 kg

DRUGS (3)
  1. AMPHOTERICIN B [Suspect]
  2. NUBAIN [Suspect]
  3. ADRIAMYCIN PFS [Suspect]

REACTIONS (6)
  - ANXIETY [None]
  - CONVULSION [None]
  - DRUG WITHDRAWAL SYNDROME [None]
  - HEPATIC CIRRHOSIS [None]
  - MUSCLE SPASMS [None]
  - PARAESTHESIA [None]
